FAERS Safety Report 21290125 (Version 2)
Quarter: 2022Q4

REPORT INFORMATION
  Report Type: Spontaneous
  Country: BR (occurrence: BR)
  Receive Date: 20220902
  Receipt Date: 20221014
  Transmission Date: 20230112
  Serious: Yes (Other)
  Sender: FDA-Public Use
  Company Number: BR-TAKEDA-2022TUS056819

PATIENT
  Sex: Male
  Weight: 110 kg

DRUGS (6)
  1. LISDEXAMFETAMINE DIMESYLATE [Suspect]
     Active Substance: LISDEXAMFETAMINE DIMESYLATE
     Indication: Depression
     Dosage: 1 DOSAGE FORM, QD
     Route: 065
  2. LISDEXAMFETAMINE DIMESYLATE [Suspect]
     Active Substance: LISDEXAMFETAMINE DIMESYLATE
     Dosage: UNK
     Route: 065
     Dates: start: 20220706
  3. LISDEXAMFETAMINE DIMESYLATE [Suspect]
     Active Substance: LISDEXAMFETAMINE DIMESYLATE
     Indication: Depression
     Dosage: UNK
     Route: 065
  4. LISDEXAMFETAMINE DIMESYLATE [Suspect]
     Active Substance: LISDEXAMFETAMINE DIMESYLATE
     Indication: Attention deficit hyperactivity disorder
     Dosage: 140 MILLIGRAM
     Route: 065
  5. ATENOLOL [Concomitant]
     Active Substance: ATENOLOL
     Route: 065
  6. PFIZER-BIONTECH COVID-19 VACCINE [Concomitant]
     Active Substance: TOZINAMERAN
     Dosage: UNK
     Route: 065

REACTIONS (25)
  - Loss of consciousness [Unknown]
  - Suicidal ideation [Recovered/Resolved]
  - Bradykinesia [Unknown]
  - Sleep disorder [Unknown]
  - Affective disorder [Unknown]
  - Drug ineffective [Unknown]
  - Therapy interrupted [Unknown]
  - Blood pressure abnormal [Unknown]
  - Panic disorder [Recovered/Resolved]
  - Apathy [Recovered/Resolved]
  - Neuropsychiatric syndrome [Recovered/Resolved]
  - Restless legs syndrome [Recovered/Resolved]
  - Social anxiety disorder [Recovered/Resolved]
  - Fear [Recovered/Resolved]
  - Pain [Recovered/Resolved]
  - Therapeutic product effect decreased [Unknown]
  - Increased appetite [Recovered/Resolved]
  - Anger [Recovered/Resolved]
  - Irritability [Recovered/Resolved]
  - Somnolence [Unknown]
  - Abdominal pain [Recovered/Resolved]
  - Decreased interest [Recovered/Resolved]
  - Off label use [Unknown]
  - Product availability issue [Unknown]
  - Overdose [Unknown]
